FAERS Safety Report 6876962-X (Version None)
Quarter: 2010Q3

REPORT INFORMATION
  Report Type: 
  Country: None (occurrence: None)
  Receive Date: 20100727
  Receipt Date: 20100727
  Transmission Date: 20110219
  Serious: No
  Sender: FDA-Public Use
  Company Number: None

PATIENT
  Age: 66 Year
  Sex: Female
  Weight: 52.1637 kg

DRUGS (1)
  1. AZITHROMYCIN [Suspect]
     Indication: BRONCHITIS
     Dosage: 2 TABLETS ON FIRST DAY ONE TABLET A DAY PO
     Route: 048
     Dates: start: 20100622, end: 20100625

REACTIONS (2)
  - AGEUSIA [None]
  - ANOSMIA [None]
